FAERS Safety Report 11712985 (Version 2)
Quarter: 2015Q4

REPORT INFORMATION
  Report Type: Report from Study
  Country: US (occurrence: US)
  Receive Date: 20151108
  Receipt Date: 20151116
  Transmission Date: 20160304
  Serious: No
  Sender: FDA-Public Use
  Company Number: US-AMGEN-USASL2015113886

PATIENT
  Age: 60 Year
  Sex: Female

DRUGS (2)
  1. METHOTREXATE [Suspect]
     Active Substance: METHOTREXATE
     Indication: PRODUCT USED FOR UNKNOWN INDICATION
     Dosage: UNK
     Route: 065
  2. ENBREL [Suspect]
     Active Substance: ETANERCEPT
     Indication: RHEUMATOID ARTHRITIS
     Dosage: UNK
     Route: 065
     Dates: start: 2015

REACTIONS (16)
  - Hepatomegaly [Unknown]
  - Peripheral swelling [Not Recovered/Not Resolved]
  - Inflammation [Unknown]
  - Skin disorder [Unknown]
  - Hepatic pain [Not Recovered/Not Resolved]
  - Skin discolouration [Unknown]
  - Urinary tract infection [Unknown]
  - Drug ineffective [Unknown]
  - Joint swelling [Not Recovered/Not Resolved]
  - Hepatitis [Not Recovered/Not Resolved]
  - Arthritis [Unknown]
  - Contusion [Recovered/Resolved]
  - Psoriasis [Unknown]
  - Arthralgia [Unknown]
  - Abdominal pain [Not Recovered/Not Resolved]
  - Anxiety [Unknown]

NARRATIVE: CASE EVENT DATE: 2015
